FAERS Safety Report 8237776-1 (Version None)
Quarter: 2012Q1

REPORT INFORMATION
  Report Type: 
  Country: None (occurrence: None)
  Receive Date: 20120327
  Receipt Date: 20120321
  Transmission Date: 20120608
  Serious: Yes (Death, Hospitalization)
  Sender: FDA-Public Use
  Company Number: US-VERTEX PHARMACEUTICALS INC.-AE-2012-003492

PATIENT
  Sex: Male
  Weight: 99.88 kg

DRUGS (4)
  1. METHADONE HCL [Concomitant]
  2. PEGASYS [Concomitant]
     Indication: HEPATITIS C
     Dates: start: 20120217, end: 20120227
  3. INCIVEK [Suspect]
     Indication: HEPATITIS C
     Route: 048
     Dates: start: 20120221, end: 20120227
  4. RIBAVIRIN [Concomitant]
     Indication: HEPATITIS C
     Dates: start: 20120217, end: 20120227

REACTIONS (2)
  - ACUTE HEPATIC FAILURE [None]
  - RENAL FAILURE [None]
